FAERS Safety Report 9839166 (Version 2)
Quarter: 2014Q1

REPORT INFORMATION
  Report Type: Spontaneous
  Country: FR (occurrence: FR)
  Receive Date: 20140123
  Receipt Date: 20140310
  Transmission Date: 20141002
  Serious: Yes (Hospitalization, Disabling)
  Sender: FDA-Public Use
  Company Number: FR-B.I. PHARMACEUTICALS,INC./RIDGEFIELD-2014-BI-02979FF

PATIENT
  Age: 71 Year
  Sex: Male
  Weight: 107 kg

DRUGS (10)
  1. PRADAXA [Suspect]
     Indication: ATRIAL FIBRILLATION
     Dosage: 300 MG
     Route: 048
     Dates: end: 201401
  2. LANTUS [Concomitant]
     Route: 065
  3. JANUMET [Concomitant]
     Route: 065
  4. DAONIL [Concomitant]
     Route: 065
  5. INEXIUM 20 MG [Concomitant]
     Route: 065
  6. TAHOR [Concomitant]
     Dosage: 10 MG
     Route: 065
  7. BIPRETERAX [Concomitant]
     Dosage: DOSE PER APPLICATION :10/2.5 MG
     Route: 065
  8. CARDENSIEL [Concomitant]
     Dosage: 5 MG
     Route: 065
  9. FUROSEMIDE [Concomitant]
     Dosage: 20 MG
     Route: 065
  10. LERCANIDIPINE [Concomitant]
     Dosage: 10 MG
     Route: 065

REACTIONS (1)
  - Cerebrovascular accident [Recovered/Resolved with Sequelae]
